FAERS Safety Report 4947278-3 (Version None)
Quarter: 2006Q1

REPORT INFORMATION
  Report Type: 
  Country: None (occurrence: None)
  Receive Date: 20060313
  Receipt Date: 20060307
  Transmission Date: 20060701
  Serious: Yes (Death, Hospitalization, Other)
  Sender: FDA-Public Use
  Company Number: HQWYE589322SEP05

PATIENT
  Age: 72 Year
  Sex: Male
  Weight: 105.78 kg

DRUGS (6)
  1. PROGRAF [Suspect]
     Indication: PROPHYLAXIS AGAINST TRANSPLANT REJECTION
     Dosage: SEE IMAGE
     Route: 048
     Dates: start: 20040211
  2. ECOTRIN (ACETYLSALICYLIC ACID) [Concomitant]
  3. ACULAR [Concomitant]
  4. DIGOXIN [Concomitant]
  5. STRESSTABS (VITAMIN B-COMPLEX/VITAMIN C) [Concomitant]
  6. MAG-OX (MAGNESIUM OXIDE) [Concomitant]

REACTIONS (3)
  - FLUID RETENTION [None]
  - NAUSEA [None]
  - RECTAL CANCER [None]
